FAERS Safety Report 11286272 (Version 3)
Quarter: 2015Q3

REPORT INFORMATION
  Report Type: Spontaneous
  Country: CA (occurrence: CA)
  Receive Date: 20150721
  Receipt Date: 20150828
  Transmission Date: 20151125
  Serious: Yes (Hospitalization, Other)
  Sender: FDA-Public Use
  Company Number: CA-009507513-1507CAN007876

PATIENT
  Age: 57 Year
  Sex: Female
  Weight: 78 kg

DRUGS (1)
  1. KEYTRUDA [Suspect]
     Active Substance: PEMBROLIZUMAB
     Indication: MALIGNANT MELANOMA
     Dosage: 156 MG, Q3WEEKS, STRENGTH REPORTED AS 2MG/KG
     Route: 042
     Dates: start: 20150714, end: 2015

REACTIONS (5)
  - Neoplasm [Unknown]
  - Blood test abnormal [Unknown]
  - Urinary tract infection [Recovering/Resolving]
  - Hyperglycaemia [Recovering/Resolving]
  - Seizure [Unknown]

NARRATIVE: CASE EVENT DATE: 2015
